FAERS Safety Report 11167462 (Version 1)
Quarter: 2015Q2

REPORT INFORMATION
  Report Type: Spontaneous
  Country: US (occurrence: US)
  Receive Date: 20150605
  Receipt Date: 20150605
  Transmission Date: 20150821
  Serious: Yes (Other)
  Sender: FDA-Public Use
  Company Number: US-PFIZER INC-2015187896

PATIENT
  Age: 59 Year
  Sex: Female
  Weight: 125.62 kg

DRUGS (1)
  1. REVATIO [Suspect]
     Active Substance: SILDENAFIL CITRATE
     Dosage: ^320 MG^, 3X/DAY

REACTIONS (2)
  - Renal disorder [Unknown]
  - Pulmonary hypertension [Not Recovered/Not Resolved]
